FAERS Safety Report 10402031 (Version 1)
Quarter: 2014Q1

REPORT INFORMATION
  Report Type: Spontaneous
  Country: US (occurrence: None)
  Receive Date: 20130815
  Receipt Date: 20130815
  Transmission Date: 20141002
  Serious: Yes (Other)
  Sender: FDA-Public Use
  Company Number: ADR-2012-02005

PATIENT
  Age: 68 Year
  Sex: Female

DRUGS (4)
  1. BACLOFEN INTRATHECAL (BACLOFEN INJECTION) 300MCG/ML [Suspect]
     Indication: LUMBAR RADICULOPATHY
  2. HYDROMORPHONE [Concomitant]
  3. BUPIVACAINE [Concomitant]
  4. CLONIDINE [Concomitant]

REACTIONS (3)
  - Fall [None]
  - Wound [None]
  - Implant site discharge [None]
